FAERS Safety Report 10201272 (Version 2)
Quarter: 2014Q2

REPORT INFORMATION
  Report Type: Spontaneous
  Country: US (occurrence: US)
  Receive Date: 20140528
  Receipt Date: 20140605
  Transmission Date: 20141212
  Serious: Yes (Hospitalization)
  Sender: FDA-Public Use
  Company Number: US-PFIZER INC-2014144485

PATIENT
  Age: 67 Year
  Sex: Male

DRUGS (3)
  1. AMIODARONE HCL [Suspect]
     Indication: ATRIAL FLUTTER
     Dosage: UNK
     Route: 065
  2. FUROSEMIDE [Concomitant]
     Indication: INAPPROPRIATE ANTIDIURETIC HORMONE SECRETION
     Dosage: UNK
  3. DABIGATRAN [Concomitant]
     Indication: ATRIAL FLUTTER
     Dosage: UNK

REACTIONS (2)
  - Hypothyroidism [Unknown]
  - Hyponatraemia [Recovered/Resolved]
